FAERS Safety Report 7473307-1 (Version None)
Quarter: 2011Q2

REPORT INFORMATION
  Report Type: 
  Country: None (occurrence: None)
  Receive Date: 20110511
  Receipt Date: 20110404
  Transmission Date: 20111010
  Serious: Yes (Other)
  Sender: FDA-Public Use
  Company Number: US-GENZYME-CLOF-1001128

PATIENT
  Age: 56 Year
  Sex: Male
  Weight: 76.2 kg

DRUGS (3)
  1. THIOTEPA [Suspect]
     Indication: HAEMATOLOGICAL MALIGNANCY
     Dosage: UNK UNK, UNK
     Route: 065
  2. CLOLAR [Suspect]
     Indication: HAEMATOLOGICAL MALIGNANCY
     Dosage: UNK UNK, UNK
     Route: 042
  3. MELPHALAN HYDROCHLORIDE [Suspect]
     Indication: HAEMATOLOGICAL MALIGNANCY
     Dosage: UNK UNK, UNK
     Route: 065

REACTIONS (1)
  - VENOOCCLUSIVE DISEASE [None]
